FAERS Safety Report 5018640-8 (Version None)
Quarter: 2006Q2

REPORT INFORMATION
  Report Type: 
  Country: None (occurrence: None)
  Receive Date: 20060414
  Receipt Date: 20060104
  Transmission Date: 20061013
  Serious: No
  Sender: FDA-Public Use
  Company Number: 2006SP000040

PATIENT
  Age: 96 Year
  Sex: Male
  Weight: 57.6068 kg

DRUGS (6)
  1. LUNESTA [Suspect]
     Indication: INSOMNIA
     Dosage: 2 MG;HS;ORAL
     Route: 048
     Dates: start: 20060101
  2. DHEA [Concomitant]
  3. CENTRUM SILVER [Concomitant]
  4. TAMSULOSIN HCL [Concomitant]
  5. HYDROCHLORIDE [Concomitant]
  6. KLONOPIN [Concomitant]

REACTIONS (3)
  - DRUG INEFFECTIVE [None]
  - INSOMNIA [None]
  - NAUSEA [None]
